FAERS Safety Report 17809945 (Version 9)
Quarter: 2021Q1

REPORT INFORMATION
  Report Type: Report from Study
  Country: US (occurrence: US)
  Receive Date: 20200520
  Receipt Date: 20210202
  Transmission Date: 20210419
  Serious: Yes (Other)
  Sender: FDA-Public Use
  Company Number: NVSC2020US138675

PATIENT
  Age: 47 Year
  Sex: Female

DRUGS (3)
  1. ENTRESTO [Suspect]
     Active Substance: SACUBITRIL\VALSARTAN
     Dosage: 50 MG, BID  (24/26MG)
     Route: 048
  2. ENTRESTO [Suspect]
     Active Substance: SACUBITRIL\VALSARTAN
     Dosage: 24.26 MG, BID
     Route: 048
     Dates: start: 201905
  3. ENTRESTO [Suspect]
     Active Substance: SACUBITRIL\VALSARTAN
     Indication: CARDIAC FAILURE CONGESTIVE
     Dosage: 50 MG, BID, (24/26MG)
     Route: 048

REACTIONS (20)
  - Arthralgia [Unknown]
  - Renal fusion anomaly [Unknown]
  - Loss of consciousness [Unknown]
  - Stress [Not Recovered/Not Resolved]
  - Palpitations [Unknown]
  - Hypotension [Unknown]
  - Oedema [Unknown]
  - Brain natriuretic peptide increased [Unknown]
  - Thyroid disorder [Unknown]
  - Fluid retention [Unknown]
  - Back pain [Unknown]
  - Anxiety [Not Recovered/Not Resolved]
  - Swelling [Not Recovered/Not Resolved]
  - Dizziness [Unknown]
  - Blood magnesium abnormal [Unknown]
  - Cough [Not Recovered/Not Resolved]
  - Hepatic pain [Unknown]
  - Atrial fibrillation [Unknown]
  - Dyspnoea [Not Recovered/Not Resolved]
  - Intervertebral disc disorder [Unknown]

NARRATIVE: CASE EVENT DATE: 202005
